FAERS Safety Report 4650909-9 (Version None)
Quarter: 2005Q2

REPORT INFORMATION
  Report Type: 
  Country: None (occurrence: None)
  Receive Date: 20050429
  Receipt Date: 20050418
  Transmission Date: 20051028
  Serious: Yes (Hospitalization)
  Sender: FDA-Public Use
  Company Number: T04-USA-08273-01

PATIENT
  Age: 63 Year
  Sex: Female
  Weight: 44.9061 kg

DRUGS (11)
  1. MEMANTINE HCL [Suspect]
     Indication: DEMENTIA ALZHEIMER'S TYPE
     Dosage: 204 MG QD PO
     Route: 048
     Dates: start: 20031031
  2. MEMANTINE HCL [Suspect]
     Indication: DEMENTIA ALZHEIMER'S TYPE
     Dosage: 20 MG QD PO
     Route: 048
     Dates: start: 20030614, end: 20031030
  3. MEMANTINE HCL [Suspect]
     Indication: DEMENTIA ALZHEIMER'S TYPE
     Dosage: 4 TABLET QD PO
     Route: 048
     Dates: start: 20030418, end: 20030613
  4. ASPIRIN [Concomitant]
  5. ALENDRONATE (ALENDRONATE SOIDUM) [Concomitant]
  6. PAROXETINE [Concomitant]
  7. TOCOPHEROL CONCENTRATE CAP [Concomitant]
  8. GINKGO (GINKGO BILOBA) [Concomitant]
  9. ZOLOFT [Concomitant]
  10. VITAMIN D [Concomitant]
  11. MULTI-VITAMINS [Concomitant]

REACTIONS (17)
  - ANAEMIA [None]
  - ASTHENIA [None]
  - DIFFICULTY IN WALKING [None]
  - DIVERTICULUM [None]
  - FAECAL OCCULT BLOOD POSITIVE [None]
  - FAECES DISCOLOURED [None]
  - GASTRIC ULCER [None]
  - GASTRITIS [None]
  - GASTROINTESTINAL HAEMORRHAGE [None]
  - HAEMATOCRIT DECREASED [None]
  - HAEMOGLOBIN DECREASED [None]
  - HAEMORRHOIDS [None]
  - HEPATIC CYST [None]
  - PALPITATIONS [None]
  - PLATELET COUNT DECREASED [None]
  - RED BLOOD CELL COUNT DECREASED [None]
  - ULCER HAEMORRHAGE [None]
